FAERS Safety Report 12738591 (Version 1)
Quarter: 2016Q3

REPORT INFORMATION
  Report Type: Spontaneous
  Country: US (occurrence: US)
  Receive Date: 20160912
  Receipt Date: 20160912
  Transmission Date: 20161109
  Serious: No
  Sender: FDA-Public Use
  Company Number: None

PATIENT
  Age: 62 Year
  Sex: Female
  Weight: 63 kg

DRUGS (1)
  1. LORATIDINE PHARMACY PRESCRIPTION [Suspect]
     Active Substance: LORATADINE
     Indication: MULTIPLE ALLERGIES
     Route: 048

REACTIONS (2)
  - Urinary tract infection [None]
  - Dizziness [None]

NARRATIVE: CASE EVENT DATE: 20160910
